FAERS Safety Report 7330243-9 (Version None)
Quarter: 2011Q1

REPORT INFORMATION
  Report Type: 
  Country: None (occurrence: None)
  Receive Date: 20110303
  Receipt Date: 20110225
  Transmission Date: 20110831
  Serious: Yes (Death)
  Sender: FDA-Public Use
  Company Number: US-GILEAD-2011-0036569

PATIENT
  Sex: Female

DRUGS (3)
  1. REVATIO [Concomitant]
  2. LETAIRIS [Suspect]
     Indication: PORTOPULMONARY HYPERTENSION
     Route: 048
     Dates: start: 20090413, end: 20110212
  3. VELETRI [Concomitant]

REACTIONS (1)
  - COMPLICATIONS OF TRANSPLANTED LIVER [None]
